FAERS Safety Report 13707100 (Version 1)
Quarter: 2017Q2

REPORT INFORMATION
  Report Type: Spontaneous
  Country: US (occurrence: US)
  Receive Date: 20170630
  Receipt Date: 20170630
  Transmission Date: 20170830
  Serious: No
  Sender: FDA-Public Use
  Company Number: US-GLAXOSMITHKLINE-US2017GSK100676

PATIENT
  Sex: Female

DRUGS (1)
  1. LAMICTAL [Suspect]
     Active Substance: LAMOTRIGINE
     Indication: BIPOLAR DISORDER
     Dosage: 25 MG, UNK
     Dates: start: 201705

REACTIONS (7)
  - Emotional poverty [Unknown]
  - Feeling abnormal [Unknown]
  - Mood swings [Unknown]
  - Ill-defined disorder [Unknown]
  - Anxiety [Unknown]
  - Depression [Unknown]
  - Emotional disorder [Unknown]
